FAERS Safety Report 7241015-8 (Version None)
Quarter: 2011Q1

REPORT INFORMATION
  Report Type: 
  Country: None (occurrence: None)
  Receive Date: 20110124
  Receipt Date: 20110112
  Transmission Date: 20110831
  Serious: Yes (Other)
  Sender: FDA-Public Use
  Company Number: PHHY2011US00726

PATIENT
  Sex: Male
  Weight: 70 kg

DRUGS (6)
  1. NORVASC [Concomitant]
     Indication: HYPERTENSION
     Dosage: 10 MG
  2. EXJADE [Suspect]
     Dosage: 1500 MG, QD
     Dates: start: 20101129, end: 20101221
  3. ACYCLOVIR [Concomitant]
     Dosage: 400 MG, QD
  4. CYCLOSPORINE [Suspect]
     Indication: APLASTIC ANAEMIA
     Dosage: 125 MG, BID
     Route: 048
     Dates: start: 20100701
  5. FLUCONAZOLE [Concomitant]
     Dosage: 200 MG, QD
  6. NEXIUM [Concomitant]
     Dosage: 40 MG, QD

REACTIONS (2)
  - BLOOD CREATININE INCREASED [None]
  - SERUM FERRITIN INCREASED [None]
